FAERS Safety Report 19623471 (Version 3)
Quarter: 2021Q4

REPORT INFORMATION
  Report Type: Other
  Country: CA (occurrence: CA)
  Receive Date: 20210729
  Receipt Date: 20211224
  Transmission Date: 20220303
  Serious: No
  Sender: FDA-Public Use
  Company Number: CA-TOLMAR, INC.-21CA028479

PATIENT
  Age: 80 Year
  Sex: Male

DRUGS (2)
  1. ELIGARD [Suspect]
     Active Substance: LEUPROLIDE ACETATE
     Indication: Prostate cancer
     Dosage: 30 MILLIGRAM, Q 4 MONTH
     Route: 058
     Dates: start: 20210624
  2. ELIGARD [Suspect]
     Active Substance: LEUPROLIDE ACETATE
     Dosage: 30 MILLIGRAM, Q 4 MONTH
     Route: 058
     Dates: start: 20211013

REACTIONS (10)
  - Urinary tract infection [Not Recovered/Not Resolved]
  - Penile burning sensation [Not Recovered/Not Resolved]
  - Asthenia [Unknown]
  - Weight decreased [Unknown]
  - Back pain [Not Recovered/Not Resolved]
  - Injection site pain [Recovered/Resolved]
  - Dysuria [Unknown]
  - Pollakiuria [Not Recovered/Not Resolved]
  - Nocturia [Unknown]
  - Hot flush [Unknown]

NARRATIVE: CASE EVENT DATE: 20210624
